FAERS Safety Report 4521746 (Version 1)
Quarter: 2020Q3

REPORT INFORMATION
  Report Type: Spontaneous
  Country: US (occurrence: None)
  Receive Date: 19861224
  Receipt Date: 19861224
  Transmission Date: 20201104
  Serious: Yes (Other)
  Sender: FDA-Public Use
  Company Number: None

PATIENT
  Age: 27 Year
  Sex: Male

DRUGS (1)
  1. SALSALATE. [Suspect]
     Active Substance: SALSALATE
     Route: 048

REACTIONS (2)
  - Oedema peripheral [None]
  - Paraesthesia [None]

NARRATIVE: CASE EVENT DATE: 19861106
